FAERS Safety Report 15628029 (Version 1)
Quarter: 2018Q4

REPORT INFORMATION
  Report Type: Spontaneous
  Country: US (occurrence: US)
  Receive Date: 20181116
  Receipt Date: 20181116
  Transmission Date: 20190205
  Serious: No
  Sender: FDA-Public Use
  Company Number: US-PURDUE-USA-2017-0142108

PATIENT

DRUGS (4)
  1. PERCOCET                           /00446701/ [Concomitant]
     Active Substance: ACETAMINOPHEN\OXYCODONE HYDROCHLORIDE\OXYCODONE TEREPHTHALATE
     Indication: BREAKTHROUGH PAIN
     Dosage: 10 MG, 3-4 TIMES A DAY
  2. ATIVAN [Concomitant]
     Active Substance: LORAZEPAM
     Indication: FEELING OF RELAXATION
     Route: 048
  3. SEROQUEL [Concomitant]
     Active Substance: QUETIAPINE FUMARATE
     Indication: PRODUCT USED FOR UNKNOWN INDICATION
     Route: 048
  4. MS CONTIN [Suspect]
     Active Substance: MORPHINE SULFATE
     Indication: PAIN
     Dosage: 30 MG + 60 MG, BID
     Route: 048

REACTIONS (10)
  - Chills [Unknown]
  - Flushing [Unknown]
  - Fatigue [Unknown]
  - Hyperhidrosis [Unknown]
  - Feeling abnormal [Unknown]
  - Insomnia [Unknown]
  - Abdominal pain [Recovered/Resolved]
  - Influenza like illness [Unknown]
  - Drug withdrawal syndrome [Unknown]
  - Back pain [Unknown]
